FAERS Safety Report 8573656-X (Version None)
Quarter: 2012Q3

REPORT INFORMATION
  Report Type: 
  Country: None (occurrence: None)
  Receive Date: 20120806
  Receipt Date: 20120731
  Transmission Date: 20120928
  Serious: Yes (Hospitalization)
  Sender: FDA-Public Use
  Company Number: JP-ROCHE-1067449

PATIENT
  Sex: Female
  Weight: 48.033 kg

DRUGS (18)
  1. PURSENNID [Concomitant]
     Dates: start: 20070711
  2. LOXONIN [Concomitant]
  3. MEPTIN [Concomitant]
     Dates: start: 20080808
  4. ALLEGRA [Concomitant]
     Dates: start: 20071003
  5. PREDNISOLONE [Concomitant]
     Dates: start: 20080116
  6. VITAMIN B12 [Concomitant]
  7. CELESTAMINE TAB [Concomitant]
     Dates: start: 20091007
  8. SELBEX [Concomitant]
  9. LENDORMIN [Concomitant]
  10. XOLAIR [Suspect]
     Indication: ASTHMA
     Route: 058
     Dates: start: 20100415
  11. XOLAIR [Suspect]
     Dates: start: 20100728, end: 20100728
  12. FLUTICASONE PROPIONATE/SALMETEROL [Concomitant]
     Dates: start: 20070807, end: 20100811
  13. MAGLAX [Concomitant]
  14. PRIMPERAN (JAPAN) [Concomitant]
  15. CLARITIN [Concomitant]
  16. THEOLONG [Concomitant]
     Dates: start: 20080611
  17. LANSOPRAZOLE [Concomitant]
     Indication: PRODUCT USED FOR UNKNOWN INDICATION
  18. MEXITIL [Concomitant]

REACTIONS (3)
  - PAIN [None]
  - ALLERGIC GRANULOMATOUS ANGIITIS [None]
  - HYPOAESTHESIA [None]
